FAERS Safety Report 24287578 (Version 1)
Quarter: 2024Q3

REPORT INFORMATION
  Report Type: Spontaneous
  Country: US (occurrence: US)
  Receive Date: 20240905
  Receipt Date: 20240905
  Transmission Date: 20241016
  Serious: No
  Sender: JOHNSON AND JOHNSON
  Company Number: US-JNJFOC-20240908549

PATIENT
  Age: 63 Year
  Sex: Male
  Weight: 97 kg

DRUGS (7)
  1. STELARA [Suspect]
     Active Substance: USTEKINUMAB
     Indication: Psoriatic arthropathy
     Route: 058
     Dates: start: 202202
  2. STELARA [Suspect]
     Active Substance: USTEKINUMAB
     Indication: Psoriasis
  3. METOPROLOL [Concomitant]
     Active Substance: METOPROLOL
  4. VIAGRA [Concomitant]
     Active Substance: SILDENAFIL CITRATE
  5. LOSARTAN [Concomitant]
     Active Substance: LOSARTAN\LOSARTAN POTASSIUM
  6. METHOTREXATE [Concomitant]
     Active Substance: METHOTREXATE
  7. TRIAMCINOLONE [Concomitant]
     Active Substance: TRIAMCINOLONE
     Route: 061

REACTIONS (1)
  - Weight decreased [Unknown]
